FAERS Safety Report 6409382-2 (Version None)
Quarter: 2009Q4

REPORT INFORMATION
  Report Type: 
  Country: None (occurrence: None)
  Receive Date: 20091019
  Receipt Date: 20091019
  Transmission Date: 20100525
  Serious: Yes (Hospitalization)
  Sender: FDA-Public Use
  Company Number: None

PATIENT
  Age: 64 Year
  Sex: Male
  Weight: 74.8 kg

DRUGS (14)
  1. BEVACIZUMAB 400 MG VIALS GENENTECH [Suspect]
     Indication: NON-SMALL CELL LUNG CANCER
     Dosage: 15 MG/KG Q21 DAYS INTRAVENOUS
     Route: 042
     Dates: start: 20090701, end: 20090923
  2. ALIMTA [Concomitant]
  3. CARBOPLATIN [Concomitant]
  4. FOLIC ACID [Concomitant]
  5. DEXAMETHASONE 0.5MG TAB [Concomitant]
  6. VITAMIN B-12 [Concomitant]
  7. ROBITUSSIN [Concomitant]
  8. MULTI-VITAMIN [Concomitant]
  9. LECITHIN [Concomitant]
  10. IBUPROFEN [Concomitant]
  11. ULTRAM [Concomitant]
  12. HYCODAN [Concomitant]
  13. COMPAZINE [Concomitant]
  14. REMERON [Concomitant]

REACTIONS (2)
  - BRONCHOPLEURAL FISTULA [None]
  - PNEUMOTHORAX [None]
